FAERS Safety Report 4424470-8 (Version None)
Quarter: 2004Q3

REPORT INFORMATION
  Report Type: 
  Country: None (occurrence: None)
  Receive Date: 20040812
  Receipt Date: 20040806
  Transmission Date: 20050211
  Serious: Yes (Life-Threatening, Other)
  Sender: FDA-Public Use
  Company Number: US-GLAXOSMITHKLINE-A0521292A

PATIENT
  Age: 72 Year
  Sex: Female

DRUGS (3)
  1. LAMICTAL [Suspect]
     Indication: BIPOLAR DISORDER
     Dosage: 50MG PER DAY
     Route: 048
     Dates: start: 20040701, end: 20040731
  2. PAXIL [Concomitant]
  3. ATIVAN [Concomitant]

REACTIONS (5)
  - CONTUSION [None]
  - FALL [None]
  - RASH GENERALISED [None]
  - SWOLLEN TONGUE [None]
  - TREMOR [None]
